FAERS Safety Report 9725562 (Version 1)
Quarter: 2013Q4

REPORT INFORMATION
  Report Type: Spontaneous
  Country: US (occurrence: None)
  Receive Date: 20131202
  Receipt Date: 20131202
  Transmission Date: 20140711
  Serious: No
  Sender: FDA-Public Use
  Company Number: None

PATIENT
  Age: 66 Year
  Sex: Female
  Weight: 64.41 kg

DRUGS (1)
  1. TECFIDERA [Suspect]
     Indication: MULTIPLE SCLEROSIS
     Dates: start: 20131114, end: 20131129

REACTIONS (5)
  - Abdominal distension [None]
  - Bone pain [None]
  - Fatigue [None]
  - Headache [None]
  - Hypoaesthesia [None]
